FAERS Safety Report 4344951-5 (Version None)
Quarter: 2004Q2

REPORT INFORMATION
  Report Type: 
  Country: None (occurrence: None)
  Receive Date: 20040420
  Receipt Date: 20040405
  Transmission Date: 20050107
  Serious: Yes (Hospitalization)
  Sender: FDA-Public Use
  Company Number: 2004-0006895

PATIENT
  Age: 46 Year
  Sex: Male
  Weight: 54 kg

DRUGS (8)
  1. VIREAD [Suspect]
     Indication: HIV INFECTION
     Dosage: 300 MG, 1 IN 1 D, ORAL
     Route: 048
     Dates: start: 20040110, end: 20040210
  2. TIPRANAVIR (TIPRANAVIR) [Concomitant]
  3. NORVIR [Concomitant]
  4. EPIVIR [Concomitant]
  5. INSULATARD NPH (INSULIN HUMAN INJECTION, ISOPHANE) [Concomitant]
  6. PRAZEPAM [Concomitant]
  7. TRANXENE [Concomitant]
  8. EFFEXOR [Concomitant]

REACTIONS (7)
  - GLYCOSURIA [None]
  - HYPERPROTEINAEMIA [None]
  - HYPONATRAEMIA [None]
  - POLYDIPSIA [None]
  - POLYURIA [None]
  - RENAL FAILURE [None]
  - RENAL TUBULAR DISORDER [None]
